FAERS Safety Report 5143103-9 (Version None)
Quarter: 2006Q4

REPORT INFORMATION
  Report Type: 
  Country: None (occurrence: None)
  Receive Date: 20061031
  Receipt Date: 20061031
  Transmission Date: 20070319
  Serious: Yes (Hospitalization)
  Sender: FDA-Public Use
  Company Number: None

PATIENT
  Sex: Male
  Weight: 92.0802 kg

DRUGS (3)
  1. APROTININ [Suspect]
     Indication: HAEMORRHAGE
     Dosage: 280MG    ONCE    IV
     Route: 042
     Dates: start: 20060705, end: 20060705
  2. APROTININ [Suspect]
     Indication: PROPHYLAXIS
     Dosage: 280MG    ONCE    IV
     Route: 042
     Dates: start: 20060705, end: 20060705
  3. APROTININ [Suspect]
     Indication: THROMBOSIS
     Dosage: 280MG    ONCE    IV
     Route: 042
     Dates: start: 20060705, end: 20060705

REACTIONS (3)
  - ANAESTHETIC COMPLICATION [None]
  - CARDIO-RESPIRATORY ARREST [None]
  - PROCEDURAL HYPOTENSION [None]
